FAERS Safety Report 16753390 (Version 3)
Quarter: 2019Q3

REPORT INFORMATION
  Report Type: Report from Study
  Country: IT (occurrence: IT)
  Receive Date: 20190829
  Receipt Date: 20190904
  Transmission Date: 20191005
  Serious: Yes (Other)
  Sender: FDA-Public Use
  Company Number: IT-TEVA-2019-IT-1098210

PATIENT
  Age: 57 Year
  Sex: Female

DRUGS (4)
  1. FAMOTIDINE. [Concomitant]
     Active Substance: FAMOTIDINE
     Dosage: 40 MILLIGRAM
  2. ANASTROZOLE. [Suspect]
     Active Substance: ANASTROZOLE
     Indication: BREAST CANCER STAGE IV
     Dosage: 1 MILLIGRAM PER DAY
     Route: 048
     Dates: start: 20190528, end: 20190726
  3. PARACETAMOL [Concomitant]
     Active Substance: ACETAMINOPHEN
     Dosage: 1000 MILLIGRAM
  4. ZOMETA [Concomitant]
     Active Substance: ZOLEDRONIC ACID

REACTIONS (2)
  - Condition aggravated [Unknown]
  - Drug ineffective [Unknown]

NARRATIVE: CASE EVENT DATE: 20190726
